FAERS Safety Report 5641028-3 (Version None)
Quarter: 2008Q1

REPORT INFORMATION
  Report Type: 
  Country: None (occurrence: None)
  Receive Date: 20080131
  Receipt Date: 20071126
  Transmission Date: 20080703
  Serious: Yes (Hospitalization)
  Sender: FDA-Public Use
  Company Number: 163-21880-07101748

PATIENT
  Age: 84 Year
  Sex: Female

DRUGS (2)
  1. REVLIMID [Suspect]
     Indication: MULTIPLE MYELOMA
     Dosage: 15 MG, DAILY X 21 DAYS, 7 DAYS OFF, ORAL
     Route: 048
     Dates: start: 20071016, end: 20071022
  2. ASPIRIN [Concomitant]

REACTIONS (4)
  - LETHARGY [None]
  - MEDICATION ERROR [None]
  - NEUROPATHY PERIPHERAL [None]
  - VOMITING [None]
